FAERS Safety Report 25328695 (Version 2)
Quarter: 2025Q4

REPORT INFORMATION
  Report Type: Report from Study
  Country: US (occurrence: US)
  Receive Date: 20250519
  Receipt Date: 20251118
  Transmission Date: 20260118
  Serious: No
  Sender: SANDOZ
  Company Number: US-SANDOZ-SDZ2025US031870

PATIENT
  Sex: Male

DRUGS (2)
  1. OMNITROPE [Suspect]
     Active Substance: SOMATROPIN
     Indication: Hypopituitarism
     Dosage: 0.8 MG, QD(10 MG / 1.5 ML)
     Route: 058
     Dates: start: 202505
  2. OMNITROPE [Suspect]
     Active Substance: SOMATROPIN
     Indication: Hypopituitarism
     Dosage: 0.8 MG, QD(10 MG / 1.5 ML)
     Route: 058
     Dates: start: 202505

REACTIONS (2)
  - Injection site haemorrhage [Unknown]
  - Device breakage [Unknown]

NARRATIVE: CASE EVENT DATE: 20250101
